FAERS Safety Report 11471349 (Version 2)
Quarter: 2015Q3

REPORT INFORMATION
  Report Type: Spontaneous
  Country: US (occurrence: US)
  Receive Date: 20150903
  Receipt Date: 20150903
  Transmission Date: 20151125
  Serious: No
  Sender: FDA-Public Use
  Company Number: US-ELI_LILLY_AND_COMPANY-US201202003347

PATIENT
  Age: 59 Year
  Sex: Female

DRUGS (3)
  1. CYMBALTA [Suspect]
     Active Substance: DULOXETINE HYDROCHLORIDE
     Dosage: 60 MG, QD
     Dates: start: 2010
  2. CYMBALTA [Suspect]
     Active Substance: DULOXETINE HYDROCHLORIDE
     Dosage: 90 MG, QD
  3. CYMBALTA [Suspect]
     Active Substance: DULOXETINE HYDROCHLORIDE
     Indication: DEPRESSION
     Dosage: 30 MG, QD

REACTIONS (12)
  - Cognitive disorder [Unknown]
  - Dizziness [Unknown]
  - Anxiety [Unknown]
  - Disturbance in attention [Unknown]
  - Drug effect incomplete [Unknown]
  - Agitation [Unknown]
  - Muscle spasms [Unknown]
  - Memory impairment [Unknown]
  - Fatigue [Unknown]
  - Paraesthesia [Unknown]
  - Tearfulness [Unknown]
  - Drug withdrawal syndrome [Unknown]

NARRATIVE: CASE EVENT DATE: 20120206
